FAERS Safety Report 20006357 (Version 1)
Quarter: 2021Q4

REPORT INFORMATION
  Report Type: Spontaneous
  Country: US (occurrence: US)
  Receive Date: 20211028
  Receipt Date: 20211028
  Transmission Date: 20220304
  Serious: No
  Sender: FDA-Public Use
  Company Number: US-ORGANON-O2110USA001972

PATIENT
  Sex: Female

DRUGS (1)
  1. NEXPLANON [Suspect]
     Active Substance: ETONOGESTREL
     Dosage: ONE IMPLANT EVERY THREE YEARS (STRENGTH 68 MILLIGRAM)

REACTIONS (4)
  - Weight increased [Unknown]
  - Device issue [Unknown]
  - Complication associated with device [Recovered/Resolved]
  - Device placement issue [Unknown]
